FAERS Safety Report 5696715-8 (Version None)
Quarter: 2008Q2

REPORT INFORMATION
  Report Type: 
  Country: None (occurrence: None)
  Receive Date: 20080408
  Receipt Date: 20080401
  Transmission Date: 20081010
  Serious: Yes (Death, Hospitalization)
  Sender: FDA-Public Use
  Company Number: AT-MERCK-0804AUT00009

PATIENT
  Age: 25 Year
  Sex: Female

DRUGS (9)
  1. CANCIDAS [Suspect]
     Indication: CANDIDIASIS
     Route: 041
     Dates: start: 20050101, end: 20050101
  2. CANCIDAS [Suspect]
     Indication: PERITONITIS
     Route: 041
     Dates: start: 20050101, end: 20050101
  3. ANTILYMPHOCYTE IMMUNOGLOBULIN [Concomitant]
     Route: 065
  4. TACROLIMUS [Concomitant]
     Route: 065
  5. AZATHIOPRINE [Concomitant]
     Route: 065
  6. PREDNISOLONE [Concomitant]
     Route: 065
  7. RITUXIMAB [Concomitant]
     Indication: B-CELL LYMPHOMA
     Route: 065
  8. FLUCONAZOLE [Concomitant]
     Indication: CANDIDIASIS
     Route: 065
  9. FLUCONAZOLE [Concomitant]
     Indication: PERITONITIS
     Route: 065

REACTIONS (2)
  - MULTI-ORGAN FAILURE [None]
  - SEPSIS [None]
